FAERS Safety Report 9732508 (Version 2)
Quarter: 2014Q1

REPORT INFORMATION
  Report Type: Spontaneous
  Country: US (occurrence: US)
  Receive Date: 20131205
  Receipt Date: 20140207
  Transmission Date: 20141002
  Serious: No
  Sender: FDA-Public Use
  Company Number: US-JNJFOC-20131117393

PATIENT
  Sex: Female

DRUGS (24)
  1. STELARA [Suspect]
     Indication: PSORIASIS
     Route: 058
     Dates: start: 20101118, end: 20131015
  2. CLOBEX [Concomitant]
     Route: 061
     Dates: start: 201204
  3. HYDROCODONE ACETAMINOPHEN [Concomitant]
     Dosage: 5-325
     Route: 048
  4. TRAMADOL HCL [Concomitant]
     Route: 048
  5. FLUCONAZOLE [Concomitant]
     Route: 048
  6. VENTOLIN [Concomitant]
     Route: 055
  7. SERTRALINE HCL [Concomitant]
     Route: 065
  8. ASPIRIN [Concomitant]
     Route: 003
  9. ATORVASTATIN [Concomitant]
     Route: 048
  10. FOLIC ACID [Concomitant]
     Route: 048
  11. LISINOPRIL [Concomitant]
     Route: 048
  12. OMEPRAZOLE [Concomitant]
     Route: 048
  13. FUROSEMIDE [Concomitant]
     Route: 048
  14. HUMALOG [Concomitant]
     Dosage: 130 UNITS
     Route: 058
  15. MAGNESIUM OXIDE [Concomitant]
     Route: 048
  16. SUCRALFATE [Concomitant]
     Route: 048
  17. LEVEMIR [Concomitant]
     Dosage: 50 UNITS
     Route: 058
  18. POTASSIUM CHLORIDE [Concomitant]
     Dosage: DOSE REPORTED AS 8 MEQ
     Route: 048
  19. POTASSIUM CHLORIDE [Concomitant]
     Dosage: REPORTED AS 20 MEQ
     Route: 048
  20. TIZANIDINE HCL [Concomitant]
     Route: 048
  21. NITROSTAT [Concomitant]
     Indication: CHEST PAIN
     Dosage: 1 OR 2 TABLETS UNDER TONGUE AS NEEDED.
     Route: 060
  22. TRIAMCINOLONE [Concomitant]
     Route: 061
     Dates: start: 20100420
  23. CLOPIDOGREL [Concomitant]
     Route: 048
  24. LOCOID LIPOCREAM [Concomitant]
     Route: 061
     Dates: start: 201211

REACTIONS (1)
  - Mycobacterium tuberculosis complex test positive [Unknown]
